FAERS Safety Report 8545352-6 (Version None)
Quarter: 2012Q3

REPORT INFORMATION
  Report Type: 
  Country: None (occurrence: None)
  Receive Date: 20120719
  Receipt Date: 20120719
  Transmission Date: 20120928
  Serious: Yes (Other)
  Sender: FDA-Public Use
  Company Number: None

PATIENT
  Age: 79 Year
  Sex: Male
  Weight: 99.7913 kg

DRUGS (1)
  1. PLAVIX [Suspect]
     Indication: STENT PLACEMENT
     Dosage: 75MG ONE A DAY OTHER
     Route: 050
     Dates: start: 20120701, end: 20120716

REACTIONS (3)
  - HEADACHE [None]
  - EPISTAXIS [None]
  - PRODUCT SUBSTITUTION ISSUE [None]
